FAERS Safety Report 4602561-6 (Version None)
Quarter: 2005Q1

REPORT INFORMATION
  Report Type: 
  Country: None (occurrence: None)
  Receive Date: 20050309
  Receipt Date: 20050216
  Transmission Date: 20050727
  Serious: Yes (Hospitalization)
  Sender: FDA-Public Use
  Company Number: US-BOEHRINGER INGELHEIM PHARMMACEUTICALS, INC.-2005-BP-02554BP

PATIENT
  Sex: Female

DRUGS (7)
  1. SPIRIVA [Suspect]
     Route: 055
     Dates: start: 20041020
  2. DIGOXIN [Concomitant]
     Dates: start: 20041201
  3. COUMADIN [Concomitant]
     Dates: start: 20041201
  4. VERELAN [Concomitant]
  5. ADVAIR DISKUS 100/50 [Concomitant]
     Dates: start: 20041001
  6. LASIX [Concomitant]
     Indication: FLUID RETENTION
     Dates: start: 20050101
  7. HUMIBID LA [Concomitant]

REACTIONS (5)
  - DRY SKIN [None]
  - ERYTHEMA [None]
  - MEDICATION ERROR [None]
  - OEDEMA PERIPHERAL [None]
  - PAIN IN EXTREMITY [None]
